FAERS Safety Report 5138255-0 (Version None)
Quarter: 2006Q4

REPORT INFORMATION
  Report Type: 
  Country: None (occurrence: None)
  Receive Date: 20061030
  Receipt Date: 20060804
  Transmission Date: 20070319
  Serious: No
  Sender: FDA-Public Use
  Company Number: US-GLAXOSMITHKLINE-A0615309A

PATIENT
  Age: 75 Year
  Sex: Female

DRUGS (13)
  1. ADVAIR HFA [Suspect]
     Indication: CHRONIC OBSTRUCTIVE PULMONARY DISEASE
     Dosage: 1PUFF TWICE PER DAY
  2. COMBIVENT [Concomitant]
  3. SPIRIVA [Concomitant]
  4. SYNTHROID [Concomitant]
  5. SOTALOL HYDROCHLORIDE [Concomitant]
  6. COZAAR [Concomitant]
  7. LANOXIN [Concomitant]
  8. FOSAMAX [Concomitant]
  9. PREMARIN [Concomitant]
  10. CRESTOR [Concomitant]
  11. FISH OIL [Concomitant]
  12. NASONEX [Concomitant]
  13. ASPIRIN [Concomitant]

REACTIONS (3)
  - DYSPNOEA [None]
  - FEELING ABNORMAL [None]
  - PHARMACEUTICAL PRODUCT COMPLAINT [None]
